FAERS Safety Report 6135709-5 (Version None)
Quarter: 2009Q1

REPORT INFORMATION
  Report Type: 
  Country: None (occurrence: None)
  Receive Date: 20090327
  Receipt Date: 20090317
  Transmission Date: 20090719
  Serious: Yes (Hospitalization)
  Sender: FDA-Public Use
  Company Number: CH-AMGEN-QUU337292

PATIENT
  Sex: Male
  Weight: 65 kg

DRUGS (10)
  1. NEULASTA [Suspect]
     Indication: CHEMOTHERAPY
     Route: 065
     Dates: start: 20090208
  2. RITUXIMAB [Concomitant]
  3. CYCLOPHOSPHAMIDE [Concomitant]
  4. DOXORUBICIN HCL [Concomitant]
  5. ONCOVIN [Concomitant]
  6. PREDNISONE [Concomitant]
  7. VALTREX [Concomitant]
     Route: 048
  8. BACTRIM [Concomitant]
     Route: 048
  9. DIFLUCAN [Concomitant]
     Route: 048
  10. ZYLORIC [Concomitant]
     Route: 048

REACTIONS (2)
  - DRUG INEFFECTIVE [None]
  - FEBRILE NEUTROPENIA [None]
